FAERS Safety Report 14283674 (Version 1)
Quarter: 2017Q4

REPORT INFORMATION
  Report Type: Spontaneous
  Country: US (occurrence: None)
  Receive Date: 20171213
  Receipt Date: 20171213
  Transmission Date: 20180321
  Serious: Yes (Hospitalization)
  Sender: FDA-Public Use
  Company Number: None

PATIENT
  Age: 69 Year
  Sex: Female

DRUGS (1)
  1. IBRANCE [Suspect]
     Active Substance: PALBOCICLIB
     Indication: BREAST CANCER
     Dosage: 1 CAPSULE QD X 21 OFF X 7 PO
     Route: 048
     Dates: start: 20171127, end: 20171212

REACTIONS (2)
  - Cerebrovascular accident [None]
  - Memory impairment [None]

NARRATIVE: CASE EVENT DATE: 20171207
